FAERS Safety Report 4963630-4 (Version None)
Quarter: 2006Q1

REPORT INFORMATION
  Report Type: 
  Country: None (occurrence: None)
  Receive Date: 20060201
  Receipt Date: 20051104
  Transmission Date: 20060701
  Serious: No
  Sender: FDA-Public Use
  Company Number: 2005PV004680

PATIENT
  Age: 55 Year
  Sex: Male
  Weight: 78.9259 kg

DRUGS (8)
  1. BYETTA [Suspect]
     Indication: DIABETES MELLITUS NON-INSULIN-DEPENDENT
     Dosage: 5 MCG; BID; SC
     Route: 058
     Dates: start: 20051024
  2. METFORMIN [Concomitant]
  3. HUMALOG [Concomitant]
  4. LANTUS [Concomitant]
  5. SYNTHROID [Concomitant]
  6. VYTORIN [Concomitant]
  7. LYRICA [Concomitant]
  8. NEXIUM [Concomitant]

REACTIONS (4)
  - ABDOMINAL PAIN UPPER [None]
  - DECREASED APPETITE [None]
  - DYSPEPSIA [None]
  - NAUSEA [None]
